FAERS Safety Report 8966556 (Version 1)
Quarter: 2012Q4

REPORT INFORMATION
  Report Type: 
  Country: US (occurrence: US)
  Receive Date: 20121217
  Receipt Date: 20121217
  Transmission Date: 20130627
  Serious: No
  Sender: FDA-Public Use
  Company Number: US-BAYER-2012-129309

PATIENT
  Age: 57 Year
  Sex: Male
  Weight: 82 kg

DRUGS (4)
  1. LEVITRA [Suspect]
     Indication: ERECTILE DYSFUNCTION
     Dosage: 20 mg, UNK
     Dates: start: 2009, end: 2009
  2. HUMALOG [Concomitant]
     Indication: DIABETES
     Dosage: 4 u, QD
  3. LANTUS [Concomitant]
     Indication: DIABETES
     Dosage: UNK UNK, QD
  4. CHLORTHALIDONE [Concomitant]

REACTIONS (1)
  - Drug ineffective [None]
